FAERS Safety Report 7106272-7 (Version None)
Quarter: 2010Q4

REPORT INFORMATION
  Report Type: 
  Country: None (occurrence: None)
  Receive Date: 20101116
  Receipt Date: 20101110
  Transmission Date: 20110411
  Serious: Yes (Hospitalization)
  Sender: FDA-Public Use
  Company Number: ES-PFIZER INC-2010145445

PATIENT
  Age: 76 Year
  Sex: Male
  Weight: 86 kg

DRUGS (10)
  1. TEMSIROLIMUS [Suspect]
     Indication: PANCREATIC CARCINOMA
     Dosage: 15 MG, WEEKLY
     Route: 042
     Dates: start: 20100602, end: 20100623
  2. DOCETAXEL [Suspect]
     Indication: PANCREATIC CARCINOMA
     Dosage: 130 MG, EVERY 3 WEEKS
     Route: 042
     Dates: start: 20100601, end: 20100622
  3. SPIRIVA [Concomitant]
     Indication: BRONCHIAL DISORDER
     Dosage: UNK
     Dates: start: 20100501, end: 20100716
  4. SYMBICORT [Concomitant]
     Indication: BRONCHIAL DISORDER
     Dosage: UNK
     Dates: start: 20100501, end: 20100716
  5. FLUIMUCIL [Concomitant]
     Indication: BRONCHIAL DISORDER
     Dosage: UNK
     Dates: start: 20100501, end: 20100716
  6. HUMALOG MIX [Concomitant]
     Indication: HYPERGLYCAEMIA
     Dosage: UNK
     Dates: start: 20090401
  7. NORVASC [Concomitant]
     Indication: HYPERTENSION
     Dosage: 10 MG, 1X/DAY
     Dates: start: 20090401
  8. METFORMIN HCL [Concomitant]
     Indication: HYPERGLYCAEMIA
     Dosage: 850 MG, 3X/DAY
     Dates: start: 20090401
  9. SIMVASTATIN [Concomitant]
     Indication: HYPERTRIGLYCERIDAEMIA
     Dosage: 20 MG, 1X/DAY
     Dates: start: 20090401
  10. COAPROVEL [Concomitant]
     Indication: HYPERTENSION
     Dosage: 300 MG, 1X/DAY
     Dates: start: 20100501, end: 20100716

REACTIONS (2)
  - NEUTROPENIA [None]
  - RESPIRATORY TRACT INFECTION [None]
